FAERS Safety Report 4853819-7 (Version None)
Quarter: 2005Q4

REPORT INFORMATION
  Report Type: 
  Country: None (occurrence: None)
  Receive Date: 20051213
  Receipt Date: 20051129
  Transmission Date: 20060501
  Serious: Yes (Death)
  Sender: FDA-Public Use
  Company Number: US-2005-019898

PATIENT
  Age: 52 Year
  Sex: Female

DRUGS (9)
  1. BETASERON [Suspect]
     Indication: SECONDARY PROGRESSIVE MULTIPLE SCLEROSIS
     Dosage: SUBCUTANEOUS
     Route: 058
     Dates: start: 20010730
  2. FOSAMAX [Concomitant]
  3. TRAZODONE HCL [Concomitant]
  4. BACLOFEN [Concomitant]
  5. MIRAPEX [Concomitant]
  6. FLUOXETINE [Concomitant]
  7. RANITIDINE [Concomitant]
  8. TYLENOL PM (DIPHENHYDRAMINE) [Concomitant]
  9. BENADRYL  WARNER-LAMBERT (DIPHENHYDRAMINE HYDROCHLORIDE) [Concomitant]

REACTIONS (1)
  - ARTERIOSCLEROSIS [None]
